FAERS Safety Report 6786329-0 (Version None)
Quarter: 2010Q2

REPORT INFORMATION
  Report Type: 
  Country: None (occurrence: None)
  Receive Date: 20100621
  Receipt Date: 20100621
  Transmission Date: 20101027
  Serious: Yes (Death)
  Sender: FDA-Public Use
  Company Number: None

PATIENT
  Sex: Male
  Weight: 112.9457 kg

DRUGS (3)
  1. PROLIXIN [Suspect]
     Indication: SCHIZOPHRENIA
     Dosage: 10 MG QHS PO; YEARS
     Route: 048
  2. DIVALPROEX SODIUM [Concomitant]
  3. LEVOTHYROXINE SODIUM [Concomitant]

REACTIONS (2)
  - FALL [None]
  - NEUROLEPTIC MALIGNANT SYNDROME [None]
